FAERS Safety Report 5332876-8 (Version None)
Quarter: 2007Q2

REPORT INFORMATION
  Report Type: 
  Country: None (occurrence: None)
  Receive Date: 20070521
  Receipt Date: 20070502
  Transmission Date: 20071010
  Serious: No
  Sender: FDA-Public Use
  Company Number: DAV-AE-ACY-07-012

PATIENT
  Age: 6 Month
  Sex: Female
  Weight: 5.5 kg

DRUGS (7)
  1. ACYCLOVIR [Suspect]
     Indication: HERPES SIMPLEX
     Dosage: 250 MG/M2 QD
  2. ACYCLOVIR [Suspect]
     Indication: HERPES SIMPLEX
     Dosage: 250 MG/M2 TID
  3. CYCLOSPORINE [Suspect]
     Indication: IMMUNOSUPPRESSION
     Dosage: 10MG/KG/DAY
  4. TICARCILLIN-CLAVULANIC ACID [Concomitant]
  5. FLUCONAZOLE [Concomitant]
  6. FENTANYL [Concomitant]
  7. MIDAZOLAM HCL [Concomitant]

REACTIONS (4)
  - COMA [None]
  - ENCEPHALOPATHY [None]
  - IMMUNOSUPPRESSANT DRUG LEVEL DECREASED [None]
  - NEUROTOXICITY [None]
